FAERS Safety Report 6713147-1 (Version None)
Quarter: 2010Q2

REPORT INFORMATION
  Report Type: 
  Country: None (occurrence: None)
  Receive Date: 20100506
  Receipt Date: 20100422
  Transmission Date: 20101027
  Serious: Yes (Hospitalization)
  Sender: FDA-Public Use
  Company Number: PHHY2010FR25436

PATIENT
  Age: 75 Year
  Sex: Female
  Weight: 56 kg

DRUGS (15)
  1. EXJADE [Suspect]
     Dosage: 3000 MG, DAILY
     Route: 048
     Dates: start: 20091001
  2. NEURONTIN [Suspect]
     Indication: MYALGIA
     Dosage: 900 MG, DAILY
  3. PEGASYS [Concomitant]
     Dosage: 1 INJECTION WEEKLY
     Dates: start: 20090814
  4. EPREX [Concomitant]
     Dosage: 40000 IU WEEKLY
  5. MIANSERIN [Concomitant]
     Dosage: 60 MG, QD
  6. FENOFIBRATE [Concomitant]
  7. DIFFU K [Concomitant]
     Dosage: 3 DF DAILY
  8. VASTAREL [Concomitant]
     Dosage: 35 MG
  9. RILMENIDINE [Concomitant]
     Dosage: 1 DF DAILY
  10. RAMIPRIL [Concomitant]
     Dosage: 2.5 MG
  11. VEINAMITOL [Concomitant]
  12. ZOPICLONE [Concomitant]
  13. PARACETAMOL [Concomitant]
     Dosage: 1 G DAILY
  14. DIAMICRON [Concomitant]
     Dosage: 60 MG DAILY
  15. GLUCOR [Concomitant]
     Dosage: 150 MG DAILY

REACTIONS (10)
  - CREATININE RENAL CLEARANCE DECREASED [None]
  - FAECAL INCONTINENCE [None]
  - FLUID INTAKE REDUCED [None]
  - GAIT DISTURBANCE [None]
  - GENERAL PHYSICAL HEALTH DETERIORATION [None]
  - HYPERCREATININAEMIA [None]
  - MUSCULAR WEAKNESS [None]
  - RENAL IMPAIRMENT [None]
  - SOMNOLENCE [None]
  - URINARY RETENTION [None]
